FAERS Safety Report 5983461-6 (Version None)
Quarter: 2008Q4

REPORT INFORMATION
  Report Type: 
  Country: None (occurrence: None)
  Receive Date: 20081208
  Receipt Date: 20081128
  Transmission Date: 20090506
  Serious: Yes (Hospitalization)
  Sender: FDA-Public Use
  Company Number: FR-ABBOTT-08P-056-0477450-00

PATIENT
  Age: 16 Year
  Sex: Female

DRUGS (4)
  1. DEPAKOTE [Suspect]
     Indication: INTENTIONAL OVERDOSE
     Route: 048
     Dates: start: 20080909, end: 20080909
  2. DEPAKOTE [Suspect]
     Indication: IMPULSIVE BEHAVIOUR
     Route: 048
     Dates: start: 20080521, end: 20080909
  3. DEPAKOTE [Suspect]
     Route: 048
     Dates: start: 20080909, end: 20080909
  4. HYDROXYZINE HYDROCHLORIDE [Concomitant]
     Indication: ANXIETY
     Route: 048

REACTIONS (7)
  - ASTHENIA [None]
  - BALANCE DISORDER [None]
  - DIZZINESS [None]
  - DRUG LEVEL INCREASED [None]
  - HYPERAMMONAEMIA [None]
  - INTENTIONAL OVERDOSE [None]
  - TINNITUS [None]
